FAERS Safety Report 9994480 (Version 2)
Quarter: 2014Q4

REPORT INFORMATION
  Report Type: Report from Study
  Country: US (occurrence: US)
  Receive Date: 20140311
  Receipt Date: 20141125
  Transmission Date: 20150529
  Serious: Yes (Hospitalization)
  Sender: FDA-Public Use
  Company Number: US-BIOGENIDEC-2014BI019237

PATIENT
  Age: 62 Year
  Sex: Female

DRUGS (17)
  1. LISINOPRIL. [Concomitant]
     Active Substance: LISINOPRIL
  2. MORPHINE SULFATE. [Concomitant]
     Active Substance: MORPHINE SULFATE
  3. TECFIDERA [Suspect]
     Active Substance: DIMETHYL FUMARATE
     Indication: MULTIPLE SCLEROSIS
     Route: 048
     Dates: start: 20140217, end: 20140219
  4. BUPROPION [Concomitant]
     Active Substance: BUPROPION
  5. CLONIDINE. [Concomitant]
     Active Substance: CLONIDINE
  6. MINOXIDIL. [Concomitant]
     Active Substance: MINOXIDIL
  7. OMEPRAZOLE. [Concomitant]
     Active Substance: OMEPRAZOLE
  8. CALCIUM CARBONATE. [Concomitant]
     Active Substance: CALCIUM CARBONATE
  9. VITAMINB12- FOLIC ACID [Concomitant]
  10. CRANBERRY. [Concomitant]
     Active Substance: CRANBERRY
  11. LEVOTHYROXINE [Concomitant]
     Active Substance: LEVOTHYROXINE
  12. METFORMIN [Concomitant]
     Active Substance: METFORMIN HYDROCHLORIDE
  13. VITAMIN D [Concomitant]
     Active Substance: CHOLECALCIFEROL
  14. DILTIAZEM [Concomitant]
     Active Substance: DILTIAZEM
  15. AMITRIPTYLINE [Concomitant]
     Active Substance: AMITRIPTYLINE
  16. STRESSTABS [Concomitant]
  17. TIZANIDINE (TIZANIDINE) [Concomitant]
     Active Substance: TIZANIDINE

REACTIONS (3)
  - Dehydration [Recovered/Resolved]
  - Diarrhoea [Recovered/Resolved]
  - Vomiting [Recovered/Resolved]

NARRATIVE: CASE EVENT DATE: 20140219
